FAERS Safety Report 19958672 (Version 2)
Quarter: 2021Q4

REPORT INFORMATION
  Report Type: Spontaneous
  Country: US (occurrence: US)
  Receive Date: 20211015
  Receipt Date: 20211130
  Transmission Date: 20220303
  Serious: No
  Sender: FDA-Public Use
  Company Number: US-MYLANLABS-2021M1070804

PATIENT
  Sex: Female

DRUGS (1)
  1. ETHINYL ESTRADIOL\ETHYNODIOL DIACETATE [Suspect]
     Active Substance: ETHINYL ESTRADIOL\ETHYNODIOL DIACETATE
     Indication: Contraception
     Dosage: UNK
     Route: 048

REACTIONS (5)
  - Product packaging issue [Unknown]
  - Product physical issue [Unknown]
  - Therapeutic product effect decreased [Unknown]
  - Suspected product tampering [Unknown]
  - Product packaging quantity issue [Unknown]
